FAERS Safety Report 6313400-X (Version None)
Quarter: 2009Q3

REPORT INFORMATION
  Report Type: 
  Country: None (occurrence: None)
  Receive Date: 20090818
  Receipt Date: 20090810
  Transmission Date: 20100115
  Serious: Yes (Other)
  Sender: FDA-Public Use
  Company Number: US-PFIZER INC-2004115161

PATIENT
  Sex: Female
  Weight: 59 kg

DRUGS (6)
  1. PROVERA [Suspect]
     Indication: HORMONE REPLACEMENT THERAPY
     Dosage: UNK
     Route: 048
     Dates: start: 19960101
  2. PREMARIN [Suspect]
     Indication: HORMONE REPLACEMENT THERAPY
     Dosage: UNK
     Dates: start: 19960101
  3. PREMPHASE 14/14 [Suspect]
     Indication: HORMONE REPLACEMENT THERAPY
     Route: 048
  4. PREMPRO [Suspect]
     Indication: HORMONE REPLACEMENT THERAPY
  5. COMBIPATCH [Suspect]
     Indication: HORMONE REPLACEMENT THERAPY
     Dosage: UNK
     Dates: start: 20010101, end: 20030101
  6. VIVELLE [Suspect]
     Indication: HORMONE REPLACEMENT THERAPY
     Dosage: UNK
     Dates: start: 20010101, end: 20030101

REACTIONS (1)
  - BREAST CANCER [None]
